FAERS Safety Report 13606084 (Version 1)
Quarter: 2017Q2

REPORT INFORMATION
  Report Type: Spontaneous
  Country: US (occurrence: US)
  Receive Date: 20170602
  Receipt Date: 20170602
  Transmission Date: 20170830
  Serious: Yes (Death)
  Sender: FDA-Public Use
  Company Number: None

PATIENT
  Age: 47 Year
  Sex: Male
  Weight: 63.11 kg

DRUGS (1)
  1. OPDIVO [Suspect]
     Active Substance: NIVOLUMAB
     Indication: LUNG NEOPLASM MALIGNANT
     Dosage: INJECTION 2 X MONTH, TOTAL 18 INJECTIONS
     Dates: start: 20161031, end: 20170222

REACTIONS (6)
  - Malignant peritoneal neoplasm [None]
  - Decreased appetite [None]
  - Abdominal discomfort [None]
  - Weight decreased [None]
  - Abdominal distension [None]
  - Ascites [None]

NARRATIVE: CASE EVENT DATE: 20161031
